FAERS Safety Report 11191276 (Version 4)
Quarter: 2015Q3

REPORT INFORMATION
  Report Type: Spontaneous
  Country: US (occurrence: US)
  Receive Date: 20150615
  Receipt Date: 20150831
  Transmission Date: 20151125
  Serious: Yes (Death, Life-Threatening, Hospitalization, Other)
  Sender: FDA-Public Use
  Company Number: US-BRISTOL-MYERS SQUIBB COMPANY-BMS-2015-037614

PATIENT
  Age: 55 Year
  Sex: Male

DRUGS (1)
  1. ELIQUIS [Suspect]
     Active Substance: APIXABAN
     Indication: CEREBROVASCULAR ACCIDENT PROPHYLAXIS
     Dosage: 5 MG, BID
     Route: 048
     Dates: start: 20150311, end: 20150516

REACTIONS (15)
  - Acute myocardial infarction [Unknown]
  - Haematemesis [Unknown]
  - Pulmonary venous thrombosis [Unknown]
  - Intracardiac thrombus [Fatal]
  - Sepsis [Unknown]
  - Renal failure [Unknown]
  - Septic shock [Fatal]
  - Upper gastrointestinal haemorrhage [Unknown]
  - Atrial thrombosis [Unknown]
  - CD4 lymphocytes decreased [Unknown]
  - Disseminated intravascular coagulation [Unknown]
  - Cerebral infarction [Unknown]
  - Cerebrovascular accident [Fatal]
  - Mental status changes [Unknown]
  - Thrombosis [Unknown]

NARRATIVE: CASE EVENT DATE: 20150516
